FAERS Safety Report 6935213-8 (Version None)
Quarter: 2010Q3

REPORT INFORMATION
  Report Type: 
  Country: None (occurrence: None)
  Receive Date: 20100822
  Receipt Date: 20100817
  Transmission Date: 20110219
  Serious: Yes (Death)
  Sender: FDA-Public Use
  Company Number: PHHO2010AU12468

PATIENT
  Sex: Male
  Weight: 102 kg

DRUGS (10)
  1. TASIGNA [Suspect]
     Indication: CHRONIC MYELOID LEUKAEMIA
     Dosage: 400 MG DAILY
     Route: 048
     Dates: start: 20100703, end: 20100708
  2. CYCLOSPORINE [Suspect]
     Indication: GRAFT VERSUS HOST DISEASE
     Dosage: 30 MG, BID
     Route: 042
     Dates: start: 20100710, end: 20100719
  3. METHYLPREDNISOLONE [Suspect]
     Indication: GRAFT VERSUS HOST DISEASE
     Dosage: 200 MG, BID
     Route: 042
     Dates: start: 20100710, end: 20100719
  4. URSO FALK [Suspect]
     Indication: GRAFT VERSUS HOST DISEASE
     Dosage: 500 MG, BID
     Route: 048
     Dates: end: 20100719
  5. ATG                                     /BEL/ [Suspect]
  6. GENTAMYCIN-MP [Suspect]
  7. AMBISOME [Concomitant]
  8. BACTRIM [Concomitant]
  9. FAMVIR [Concomitant]
  10. GANCICLOVIR [Concomitant]

REACTIONS (2)
  - GRAFT VERSUS HOST DISEASE [None]
  - KLEBSIELLA SEPSIS [None]
